FAERS Safety Report 10419144 (Version 1)
Quarter: 2014Q2

REPORT INFORMATION
  Report Type: Report from Study
  Country: US (occurrence: None)
  Receive Date: 20140627
  Receipt Date: 20140627
  Transmission Date: 20141212
  Serious: No
  Sender: FDA-Public Use
  Company Number: CABO-14004190

PATIENT
  Age: 71 Year
  Sex: Male

DRUGS (8)
  1. COMETRIQ (CABOZANTINIB) CAPSULE [Suspect]
     Indication: PROSTATE CANCER
     Route: 048
     Dates: start: 20140410, end: 20140501
  2. PREDNISONE [Concomitant]
  3. PRILOSEC (OMEPRAZOLE) [Concomitant]
  4. CALCIUM (CALCIUM CARBONATE) [Concomitant]
  5. VITAMIN D (COLECALCIFEROL) [Concomitant]
  6. FERROUS SULFATE [Concomitant]
  7. PEPTO BISMOL (BISMUTH SUBSALICYLATE, CALCIUM CARBONATE) [Concomitant]
  8. CENTRUM (ASCORBIC ACID, BIOTIN, CALCIUM, CALCIUM PANTOTHENATE, COLECALCIFEROL, COPPER, CUPRIC OXIDE, CYANOCOBALAMIN, DL-ALPHA TOCOPHERYL ACETATE, ERGOCALCIFEROL, FERROUS FUMARATE, FOLIC ACID, IODINE, IRON, MAGNESIUM, MAGNESIUM OXIDE, MANGANESE, MANGANESE [Concomitant]

REACTIONS (6)
  - Dry mouth [None]
  - Nausea [None]
  - Dysphonia [None]
  - Fatigue [None]
  - Dehydration [None]
  - Off label use [None]
